FAERS Safety Report 19439431 (Version 1)
Quarter: 2021Q2

REPORT INFORMATION
  Report Type: Spontaneous
  Country: ES (occurrence: ES)
  Receive Date: 20210618
  Receipt Date: 20210618
  Transmission Date: 20210717
  Serious: Yes (Other)
  Sender: FDA-Public Use
  Company Number: ES-INSUD PHARMA-2105ES00598

PATIENT
  Age: 33 Year
  Sex: Female

DRUGS (2)
  1. SLINDA [Suspect]
     Active Substance: DROSPIRENONE
     Indication: ACNE
  2. SLINDA [Suspect]
     Active Substance: DROSPIRENONE
     Indication: CONTRACEPTION
     Dosage: 4 MILLIGRAM, QD
     Route: 048
     Dates: start: 202011, end: 20210517

REACTIONS (4)
  - Suicidal ideation [Not Recovered/Not Resolved]
  - Depression [Not Recovered/Not Resolved]
  - Depressed mood [Not Recovered/Not Resolved]
  - Off label use [Unknown]

NARRATIVE: CASE EVENT DATE: 202011
